FAERS Safety Report 4788985-5 (Version None)
Quarter: 2005Q4

REPORT INFORMATION
  Report Type: 
  Country: None (occurrence: None)
  Receive Date: 20051004
  Receipt Date: 20050919
  Transmission Date: 20060501
  Serious: Yes (Other)
  Sender: FDA-Public Use
  Company Number: 217828

PATIENT
  Age: 45 Year
  Sex: Female

DRUGS (5)
  1. XOLAIR [Suspect]
     Indication: ASTHMA
     Dosage: 300 MGQ2W SUBCUTANEOUS
     Route: 058
     Dates: start: 20040601
  2. STEROID [Concomitant]
  3. ADVAIR DISKUS 100/50 [Concomitant]
  4. FLUTICASONE (FLUTICASONE PROPIONATE) [Concomitant]
  5. ACCOLATE [Concomitant]

REACTIONS (3)
  - BLOOD IMMUNOGLOBULIN G DECREASED [None]
  - BLOOD IMMUNOGLOBULIN M INCREASED [None]
  - WHITE BLOOD CELL COUNT INCREASED [None]
